FAERS Safety Report 9810014 (Version 2)
Quarter: 2015Q1

REPORT INFORMATION
  Report Type: Spontaneous
  Country: US (occurrence: US)
  Receive Date: 20140110
  Receipt Date: 20150220
  Transmission Date: 20150721
  Serious: Yes (Other)
  Sender: FDA-Public Use
  Company Number: US-SANOFI-AVENTIS-2013SA068349

PATIENT
  Age: 71 Year

DRUGS (4)
  1. PLAVIX [Suspect]
     Active Substance: CLOPIDOGREL BISULFATE
     Indication: STENT PLACEMENT
     Route: 048
     Dates: start: 20101201, end: 20111120
  2. ASPIRIN. [Concomitant]
     Active Substance: ASPIRIN
     Dates: start: 20101201, end: 20111120
  3. PLAVIX [Suspect]
     Active Substance: CLOPIDOGREL BISULFATE
     Indication: ACUTE CORONARY SYNDROME
     Route: 048
     Dates: start: 20101201, end: 20111120
  4. PLAVIX [Suspect]
     Active Substance: CLOPIDOGREL BISULFATE
     Indication: MYOCARDIAL INFARCTION
     Route: 048
     Dates: start: 20101201, end: 20111120

REACTIONS (4)
  - Penile haemorrhage [Unknown]
  - Bladder cancer [Not Recovered/Not Resolved]
  - Ulcer haemorrhage [Unknown]
  - Dysuria [Unknown]

NARRATIVE: CASE EVENT DATE: 201111
